FAERS Safety Report 6602720-7 (Version None)
Quarter: 2010Q1

REPORT INFORMATION
  Report Type: 
  Country: None (occurrence: None)
  Receive Date: 20100218
  Receipt Date: 20100205
  Transmission Date: 20100710
  Serious: Yes (Hospitalization)
  Sender: FDA-Public Use
  Company Number: 2010AL000923

PATIENT
  Age: 38 Year
  Sex: Male

DRUGS (5)
  1. VENLAFAXINE HCL [Suspect]
     Indication: DEPRESSION
     Dosage: 300 MG, PO
     Route: 048
     Dates: start: 20090902
  2. ETHANOL [Concomitant]
  3. ZOPICLONE [Concomitant]
  4. CETIRIZINE [Concomitant]
  5. NEXIUM [Concomitant]

REACTIONS (7)
  - ABDOMINAL PAIN UPPER [None]
  - ALCOHOL USE [None]
  - DRUG INTERACTION [None]
  - HYPERHIDROSIS [None]
  - MUSCLE SPASMS [None]
  - PYREXIA [None]
  - VOMITING [None]
